FAERS Safety Report 5356029-2 (Version None)
Quarter: 2007Q2

REPORT INFORMATION
  Report Type: 
  Country: None (occurrence: None)
  Receive Date: 20070529
  Receipt Date: 20070411
  Transmission Date: 20071010
  Serious: Yes (Other)
  Sender: FDA-Public Use
  Company Number: 2007029888

PATIENT
  Age: 63 Year
  Sex: Male

DRUGS (1)
  1. EXUBERA [Suspect]
     Indication: DIABETES MELLITUS NON-INSULIN-DEPENDENT
     Dosage: 8 MG BREAKFAST, 5 MG LUNG, 9 MG DINNER (3 IN 1 D),INHALATION
     Route: 055
     Dates: start: 20061101, end: 20070410

REACTIONS (1)
  - FORCED EXPIRATORY VOLUME DECREASED [None]
